FAERS Safety Report 5021112-8 (Version None)
Quarter: 2006Q2

REPORT INFORMATION
  Report Type: 
  Country: None (occurrence: None)
  Receive Date: 20060607
  Receipt Date: 20060607
  Transmission Date: 20061013
  Serious: No
  Sender: FDA-Public Use
  Company Number: None

PATIENT
  Age: 13 Year
  Sex: Male
  Weight: 29.4838 kg

DRUGS (2)
  1. RISPERDAL [Suspect]
     Indication: BIPOLAR I DISORDER
     Dosage: 0.5MG   QHS  PO;  1MG  QHS  PO
     Route: 048
     Dates: start: 20060330, end: 20060404
  2. RISPERDAL [Suspect]
     Indication: BIPOLAR I DISORDER
     Dosage: 0.5MG   QHS  PO;  1MG  QHS  PO
     Route: 048
     Dates: start: 20060404, end: 20060404

REACTIONS (1)
  - BLOOD CREATINE PHOSPHOKINASE INCREASED [None]
